FAERS Safety Report 21871709 (Version 4)
Quarter: 2024Q2

REPORT INFORMATION
  Report Type: Spontaneous
  Country: US (occurrence: US)
  Receive Date: 20230117
  Receipt Date: 20240610
  Transmission Date: 20240716
  Serious: No
  Sender: FDA-Public Use
  Company Number: US-PFIZER INC-PV202300008071

PATIENT
  Age: 22 Year
  Sex: Male
  Weight: 93.44 kg

DRUGS (14)
  1. EUCRISA [Suspect]
     Active Substance: CRISABOROLE
     Indication: Eczema
     Dosage: APPLY 1 LIBERALLY TO AFFECTED AREAX30 DAYS
     Route: 061
     Dates: start: 20221223, end: 20230421
  2. EUCRISA [Suspect]
     Active Substance: CRISABOROLE
     Indication: Dermatitis atopic
  3. ALBUTEROL SULFATE [Concomitant]
     Active Substance: ALBUTEROL SULFATE
     Dosage: 2 DF, AS NEEDED (90 MCG/ACTUATION HFA AEROSOL INHALER 2 PUFF USING INHALER EVERY FOUR TO SIX HOURS)
  4. FLUTICASONE PROPIONATE\SALMETEROL XINAFOATE [Concomitant]
     Active Substance: FLUTICASONE PROPIONATE\SALMETEROL XINAFOATE
     Dosage: 1 DF, 2X/DAY (100-50 MCG/DOSE BLISTER WITH DEVICE 1 PUFF AS DIRECTED TWICE A DAY)
  5. PIMECROLIMUS [Concomitant]
     Active Substance: PIMECROLIMUS
     Indication: Eczema
     Dosage: APPLY  A SMALL AMOUNT TO AFFECTED AREA TWICE A DAY; DO NOT USE LONGER THAN 1 MONTH . X 30 DAYS
     Dates: start: 20221213
  6. XYZAL [Concomitant]
     Active Substance: LEVOCETIRIZINE DIHYDROCHLORIDE
     Dosage: 5 MG, 1X/DAY (EVERY NIGHT) (CAN INCREASE TO BID (TWICE A DAY) ON EXACERBATED DAYS)
     Route: 048
  7. ZYRTEC [Concomitant]
     Active Substance: CETIRIZINE HYDROCHLORIDE
     Dosage: 10 MG, 1X/DAY (EVERY MORNING) (CAN INCREASE TO BID (TWICE A DAY) ON EXACERBATED DAYS)
     Route: 048
  8. PREDNISONE ACETATE [Concomitant]
     Active Substance: PREDNISONE ACETATE
     Indication: Eczema
     Dosage: UNK
  9. ADVAIR HFA [Concomitant]
     Active Substance: FLUTICASONE PROPIONATE\SALMETEROL XINAFOATE
     Dosage: 1 PUFF BID FOR OVER 10 YEARS
  10. DUPIXENT [Concomitant]
     Active Substance: DUPILUMAB
     Dosage: 300 MG, CYCLIC (EVERY 2 WEEKS 300 MG) (300 MG/2 ML PEN INJECTOR)
     Route: 058
     Dates: start: 202301
  11. CLARINEX [Concomitant]
     Active Substance: DESLORATADINE
     Dosage: UNK, DAILY (CAN INCREASE TO BID (TWICE A DAY) ON EXACERBATED DAYS)
  12. NASACORT [Concomitant]
     Active Substance: TRIAMCINOLONE ACETONIDE
     Dosage: 1 DF, 2X/DAY (1 SPRAY BID (TWICE A DAY))
  13. ALLEGRA [Concomitant]
     Active Substance: FEXOFENADINE HYDROCHLORIDE
     Dosage: 180 MG, DAILY
  14. DESLORATADINE [Concomitant]
     Active Substance: DESLORATADINE
     Indication: Pruritus
     Dosage: 5 MG, 1X/DAY (MAY INCREASE TO 2 TIMES A DAY IF VERY ITCHY X 30 DAYS)
     Dates: start: 20230913

REACTIONS (3)
  - Drug ineffective [Unknown]
  - Product storage error [Unknown]
  - Poor quality product administered [Unknown]
